FAERS Safety Report 25663351 (Version 3)
Quarter: 2025Q3

REPORT INFORMATION
  Report Type: Spontaneous
  Country: US (occurrence: US)
  Receive Date: 20250811
  Receipt Date: 20250925
  Transmission Date: 20251020
  Serious: Yes (Other)
  Sender: MOLNLYCKE
  Company Number: US-Molnlycke-2182235

PATIENT
  Age: 71 Year
  Sex: Female

DRUGS (8)
  1. HIBICLENS [Suspect]
     Active Substance: CHLORHEXIDINE GLUCONATE
     Indication: Prophylaxis
     Dates: start: 20250708, end: 20250708
  2. CALCIUM [Concomitant]
     Active Substance: CALCIUM
  3. VITAMIN D3 [Concomitant]
     Active Substance: CHOLECALCIFEROL
  4. RYTHMOL SR [Concomitant]
     Active Substance: PROPAFENONE HYDROCHLORIDE
     Dates: start: 20241110
  5. NITRO-DUR [Concomitant]
     Active Substance: NITROGLYCERIN
     Dates: start: 20241217
  6. CARDIZEM CD [Concomitant]
     Active Substance: DILTIAZEM HYDROCHLORIDE
     Dates: start: 20250505
  7. CYANOCOBALAMIN [Concomitant]
     Active Substance: CYANOCOBALAMIN
  8. KLONOPIN [Concomitant]
     Active Substance: CLONAZEPAM
     Dates: start: 20250117

REACTIONS (8)
  - Colitis ulcerative [Not Recovered/Not Resolved]
  - Vulvovaginal pruritus [Not Recovered/Not Resolved]
  - Micturition urgency [Not Recovered/Not Resolved]
  - Urge incontinence [Not Recovered/Not Resolved]
  - Product administration error [Recovered/Resolved]
  - Vulvovaginal discomfort [Not Recovered/Not Resolved]
  - Off label use [Recovered/Resolved]
  - Pain [Not Recovered/Not Resolved]

NARRATIVE: CASE EVENT DATE: 20250708
